FAERS Safety Report 18706025 (Version 1)
Quarter: 2021Q1

REPORT INFORMATION
  Report Type: Spontaneous
  Country: US (occurrence: US)
  Receive Date: 20210105
  Receipt Date: 20210105
  Transmission Date: 20210419
  Serious: No
  Sender: FDA-Public Use
  Company Number: None

PATIENT
  Age: 76 Year
  Sex: Male
  Weight: 90 kg

DRUGS (9)
  1. DOFETILIDE. [Concomitant]
     Active Substance: DOFETILIDE
  2. ATORVASTATIN [Concomitant]
     Active Substance: ATORVASTATIN
  3. VITAMIN E [Concomitant]
     Active Substance: .ALPHA.-TOCOPHEROL
  4. MULTIVITS [Concomitant]
  5. VALSARTAN TABLETS USP [Suspect]
     Active Substance: VALSARTAN
     Indication: HYPERTENSION
     Route: 048
     Dates: start: 20210104
  6. MAGNESIUM [Concomitant]
     Active Substance: MAGNESIUM
  7. OCUVITE [Concomitant]
     Active Substance: VITAMINS
  8. GINKO [Concomitant]
     Active Substance: GINKGO
  9. ASA 325MG [Concomitant]

REACTIONS (5)
  - Vertigo [None]
  - Balance disorder [None]
  - Product substitution issue [None]
  - Blood pressure increased [None]
  - Dizziness [None]

NARRATIVE: CASE EVENT DATE: 20210104
